FAERS Safety Report 4715835-5 (Version None)
Quarter: 2005Q3

REPORT INFORMATION
  Report Type: 
  Country: None (occurrence: None)
  Receive Date: 20050715
  Receipt Date: 20050715
  Transmission Date: 20060218
  Serious: Yes (Hospitalization, Disabling)
  Sender: FDA-Public Use
  Company Number: None

PATIENT
  Age: 61 Year
  Sex: Male
  Weight: 86 kg

DRUGS (16)
  1. METHYLPREDNISOLONE 1000 MG [Suspect]
     Indication: HAEMORRHAGE
     Dosage: 1000 MG QD INTRAVENOUS
     Route: 042
     Dates: start: 20050327, end: 20050330
  2. METHYLPREDNISOLONE 1000 MG [Suspect]
     Indication: MICROSCOPIC POLYANGIITIS
     Dosage: 1000 MG QD INTRAVENOUS
     Route: 042
     Dates: start: 20050327, end: 20050330
  3. METHYLPREDNISOLONE 80 MG [Suspect]
     Indication: HAEMORRHAGE
     Dosage: 80 MG QD INTRAVENOU
     Route: 042
     Dates: start: 20050331, end: 20050411
  4. METHYLPREDNISOLONE 80 MG [Suspect]
     Indication: MICROSCOPIC POLYANGIITIS
     Dosage: 80 MG QD INTRAVENOU
     Route: 042
     Dates: start: 20050331, end: 20050411
  5. CYTOXAN [Concomitant]
  6. DAPSONE [Concomitant]
  7. ATOVAQUONE [Concomitant]
  8. GANCICLOVIR [Concomitant]
  9. VANCOMYCIN [Concomitant]
  10. PIPERACILLIN/TAZOBACTAM [Concomitant]
  11. FENTANYL [Concomitant]
  12. MIDAZOLAM HCL [Concomitant]
  13. ALENDRONATE [Concomitant]
  14. AZITHROMYCIN [Concomitant]
  15. AMLODIPINE [Concomitant]
  16. METOPROLOL [Concomitant]

REACTIONS (1)
  - NEUROPATHY [None]
